FAERS Safety Report 9971043 (Version 2)
Quarter: 2014Q1

REPORT INFORMATION
  Report Type: Report from Study
  Country: US (occurrence: US)
  Receive Date: 20140306
  Receipt Date: 20140306
  Transmission Date: 20141002
  Serious: No
  Sender: FDA-Public Use
  Company Number: US-ABBVIE-13P-163-1130611-00

PATIENT
  Age: 20 Year
  Sex: Female

DRUGS (10)
  1. HUMIRA [Suspect]
     Indication: COLITIS ULCERATIVE
     Dates: start: 20130720, end: 20130720
  2. HUMIRA [Suspect]
     Dates: start: 20130803, end: 20130803
  3. HUMIRA [Suspect]
  4. LIALDA [Concomitant]
     Indication: COLITIS ULCERATIVE
     Dosage: 4 TABS DAILY
  5. IRON [Concomitant]
     Indication: BLOOD IRON DECREASED
     Dosage: DAILY
  6. CALCIUM [Concomitant]
     Indication: PRODUCT USED FOR UNKNOWN INDICATION
     Dosage: DAILY
  7. ESTER-C [Concomitant]
     Indication: PRODUCT USED FOR UNKNOWN INDICATION
     Dosage: DAILY
  8. D3 [Concomitant]
     Indication: PRODUCT USED FOR UNKNOWN INDICATION
     Dosage: DAILY
  9. CULTURELLE [Concomitant]
     Indication: PRODUCT USED FOR UNKNOWN INDICATION
     Dosage: DAILY
  10. CLARITIN [Concomitant]
     Indication: PRODUCT USED FOR UNKNOWN INDICATION

REACTIONS (6)
  - Breast tenderness [Not Recovered/Not Resolved]
  - Injection site pain [Not Recovered/Not Resolved]
  - Drug ineffective [Not Recovered/Not Resolved]
  - Diarrhoea [Not Recovered/Not Resolved]
  - Nasopharyngitis [Not Recovered/Not Resolved]
  - Injection site bruising [Not Recovered/Not Resolved]
